FAERS Safety Report 8151000-X (Version None)
Quarter: 2012Q1

REPORT INFORMATION
  Report Type: 
  Country: None (occurrence: None)
  Receive Date: 20120220
  Receipt Date: 20120209
  Transmission Date: 20120608
  Serious: Yes (Hospitalization)
  Sender: FDA-Public Use
  Company Number: US-BRISTOL-MYERS SQUIBB COMPANY-16392458

PATIENT
  Age: 80 Year
  Sex: Female
  Weight: 59 kg

DRUGS (6)
  1. ESTER-C [Concomitant]
  2. VITAMIN TAB [Concomitant]
  3. ATENOLOL [Concomitant]
  4. CALCIUM [Concomitant]
  5. MAGNESIUM [Concomitant]
  6. COUMADIN [Suspect]
     Indication: ATRIAL FIBRILLATION
     Dosage: 7.5 ON A MONDAY AND 5 THE REST OF THE TIME.
     Dates: start: 20040601

REACTIONS (4)
  - COLITIS ULCERATIVE [None]
  - RENAL IMPAIRMENT [None]
  - PNEUMONIA [None]
  - BRONCHITIS [None]
